FAERS Safety Report 5431974-8 (Version None)
Quarter: 2007Q3

REPORT INFORMATION
  Report Type: 
  Country: None (occurrence: None)
  Receive Date: 20070731
  Receipt Date: 20070507
  Transmission Date: 20080115
  Serious: No
  Sender: FDA-Public Use
  Company Number: US200705001987

PATIENT
  Age: 45 Year
  Sex: Female
  Weight: 56.2 kg

DRUGS (3)
  1. BYETTA [Suspect]
     Indication: TYPE 2 DIABETES MELLITUS
     Dosage: 5 UG, SUBCUTANEOUS
     Route: 058
     Dates: start: 20070412
  2. ASA (ASPIRIN (ACETYLSALICYLIC ACID) UNKNOWN FORMULATION) [Concomitant]
  3. METFORMIN HCL [Concomitant]

REACTIONS (8)
  - ABDOMINAL PAIN UPPER [None]
  - DECREASED APPETITE [None]
  - DRUG ADMINISTRATION ERROR [None]
  - FEELING ABNORMAL [None]
  - INJECTION SITE BRUISING [None]
  - INJECTION SITE PAIN [None]
  - NAUSEA [None]
  - WEIGHT DECREASED [None]
